FAERS Safety Report 4825681-X (Version None)
Quarter: 2005Q4

REPORT INFORMATION
  Report Type: 
  Country: None (occurrence: None)
  Receive Date: 20051111
  Receipt Date: 20051104
  Transmission Date: 20060501
  Serious: Yes (Hospitalization)
  Sender: FDA-Public Use
  Company Number: US-MERCK-0511USA00713

PATIENT
  Age: 67 Year
  Sex: Male

DRUGS (2)
  1. ZOCOR [Suspect]
     Indication: BLOOD CHOLESTEROL INCREASED
     Route: 048
     Dates: start: 19930101, end: 19940101
  2. ACCUPRIL [Concomitant]
     Route: 065

REACTIONS (2)
  - ADVERSE EVENT [None]
  - PAIN [None]
